FAERS Safety Report 12073407 (Version 1)
Quarter: 2016Q1

REPORT INFORMATION
  Report Type: Spontaneous
  Country: US (occurrence: US)
  Receive Date: 20160212
  Receipt Date: 20160212
  Transmission Date: 20160526
  Serious: No
  Sender: FDA-Public Use
  Company Number: US-SIGMA-TAU US-2015STPI000280

PATIENT
  Sex: Female
  Weight: 58.5 kg

DRUGS (2)
  1. CARNITOR [Suspect]
     Active Substance: LEVOCARNITINE
     Indication: MITOCHONDRIAL ENZYME DEFICIENCY
     Dosage: 15 ML, BID
     Route: 048
  2. CARNITOR [Suspect]
     Active Substance: LEVOCARNITINE
     Indication: MITOCHONDRIAL ENZYME DEFICIENCY
     Route: 048

REACTIONS (1)
  - Skin odour abnormal [Not Recovered/Not Resolved]
